FAERS Safety Report 8036716-8 (Version None)
Quarter: 2012Q1

REPORT INFORMATION
  Report Type: 
  Country: None (occurrence: None)
  Receive Date: 20120109
  Receipt Date: 20111227
  Transmission Date: 20120608
  Serious: Yes (Other)
  Sender: FDA-Public Use
  Company Number: 2011-5280

PATIENT
  Sex: Male
  Weight: 15.6 kg

DRUGS (1)
  1. INCRELEX [Suspect]
     Indication: FAILURE TO THRIVE
     Dosage: 36 UNITS (18 UNITS, 2 IN 1 D), SUBCUTANEOUS
     Route: 058
     Dates: start: 20100821, end: 20110401

REACTIONS (1)
  - LYMPHOMA [None]
